FAERS Safety Report 6995336-4 (Version None)
Quarter: 2010Q3

REPORT INFORMATION
  Report Type: 
  Country: None (occurrence: None)
  Receive Date: 20100917
  Receipt Date: 20090216
  Transmission Date: 20110219
  Serious: Yes (Other)
  Sender: FDA-Public Use
  Company Number: US-WYE-H04908608

PATIENT
  Sex: Female

DRUGS (7)
  1. PREMPRO [Suspect]
  2. CYCRIN [Suspect]
  3. FEMHRT [Suspect]
  4. MEDROXYPROGESTERONE [Suspect]
  5. PREFEST [Suspect]
  6. PREMARIN [Suspect]
  7. PROVERA [Suspect]

REACTIONS (1)
  - BREAST CANCER [None]
